FAERS Safety Report 17894645 (Version 1)
Quarter: 2020Q2

REPORT INFORMATION
  Report Type: Spontaneous
  Country: US (occurrence: US)
  Receive Date: 20200612
  Receipt Date: 20200612
  Transmission Date: 20200714
  Serious: Yes (Life-Threatening, Other)
  Sender: FDA-Public Use
  Company Number: None

PATIENT
  Age: 56 Year
  Sex: Female
  Weight: 58.5 kg

DRUGS (11)
  1. FLECAINIDE 50MG [Concomitant]
     Active Substance: FLECAINIDE
  2. NP THYROID [Suspect]
     Active Substance: LEVOTHYROXINE\LIOTHYRONINE
     Indication: HYPOTHYROIDISM
     Dosage: ?          QUANTITY:1 TABLET(S);?
     Route: 048
  3. DIM [Concomitant]
  4. ZORVOLEX 35MG [Concomitant]
  5. DUTASTERIDE. [Concomitant]
     Active Substance: DUTASTERIDE
  6. PROGESTERONE 200MG [Concomitant]
  7. OMEGA 3 [Concomitant]
     Active Substance: OMEGA-3 FATTY ACIDS
  8. VITAMIN B [Concomitant]
     Active Substance: VITAMIN B
  9. VITAMIN D [Concomitant]
     Active Substance: VITAMIN D NOS
  10. DAILY VITAMIN [Concomitant]
     Active Substance: VITAMINS
  11. VITAMIN C [Concomitant]
     Active Substance: ASCORBIC ACID

REACTIONS (4)
  - Anxiety [None]
  - Atrial fibrillation [None]
  - Hyperhidrosis [None]
  - Therapy change [None]

NARRATIVE: CASE EVENT DATE: 20191215
